FAERS Safety Report 21232517 (Version 1)
Quarter: 2022Q3

REPORT INFORMATION
  Report Type: Spontaneous
  Country: US (occurrence: US)
  Receive Date: 20220819
  Receipt Date: 20220819
  Transmission Date: 20221026
  Serious: No
  Sender: FDA-Public Use
  Company Number: US-GLAXOSMITHKLINE-USCH2022029184

PATIENT

DRUGS (3)
  1. TUMS EX [Suspect]
     Active Substance: CALCIUM CARBONATE
     Indication: Abdominal pain upper
     Dosage: 2 DF
  2. TUMS EX [Suspect]
     Active Substance: CALCIUM CARBONATE
     Indication: Nausea
  3. ADVIL [Suspect]
     Active Substance: IBUPROFEN
     Indication: Migraine
     Dosage: 2 DF

REACTIONS (2)
  - Drug effective for unapproved indication [Unknown]
  - Product use in unapproved indication [Unknown]
